FAERS Safety Report 8677435 (Version 2)
Quarter: 2012Q4

REPORT INFORMATION
  Report Type: 
  Country: NO (occurrence: NO)
  Receive Date: 20120723
  Receipt Date: 20121003
  Transmission Date: 20130627
  Serious: Yes (Disabling, Other)
  Sender: FDA-Public Use
  Company Number: PHHY2012NO061829

PATIENT
  Age: 78 None
  Sex: Female

DRUGS (9)
  1. ZOMETA [Suspect]
     Indication: MULTIPLE MYELOMA
     Dosage: UNK
     Dates: start: 2009, end: 2012
  2. ZOMETA [Suspect]
     Indication: OSTEOPOROSIS
     Dates: start: 2009, end: 2012
  3. ZOMETA [Suspect]
     Indication: MULTIPLE MYELOMA
  4. PARACET [Concomitant]
     Dosage: UNK UKN, UNK
  5. CARVEDILOL [Concomitant]
     Dosage: UNK UKN, UNK
  6. OXYNORM [Concomitant]
     Dosage: UNK UKN, UNK
  7. ADALAT OROS [Concomitant]
     Dosage: UNK UKN, UNK
  8. COZAAR COMP [Concomitant]
     Dosage: UNK UKN, UNK
  9. OXYCONTIN [Concomitant]
     Dosage: UNK UKN, UNK

REACTIONS (13)
  - Osteonecrosis of jaw [Not Recovered/Not Resolved]
  - Exposed bone in jaw [Unknown]
  - Osteomyelitis [Unknown]
  - Bone lesion [Unknown]
  - Primary sequestrum [Unknown]
  - Mouth ulceration [Unknown]
  - Impaired healing [Unknown]
  - Swelling [Unknown]
  - Erythema [Unknown]
  - Bone fistula [Unknown]
  - Tooth fracture [Unknown]
  - Osteolysis [Unknown]
  - Purulent discharge [Unknown]
